FAERS Safety Report 5226484-7 (Version None)
Quarter: 2007Q1

REPORT INFORMATION
  Report Type: 
  Country: None (occurrence: None)
  Receive Date: 20061201
  Receipt Date: 20060920
  Transmission Date: 20070707
  Serious: No
  Sender: FDA-Public Use
  Company Number: US200609004819

PATIENT
  Age: 50 Year
  Sex: Female

DRUGS (4)
  1. CYMBALTA [Suspect]
     Indication: MONONEUROPATHY MULTIPLEX
     Dosage: SEE IMAGE
     Dates: start: 20060901, end: 20060901
  2. CYMBALTA [Suspect]
     Indication: MONONEUROPATHY MULTIPLEX
     Dosage: SEE IMAGE
     Dates: start: 20060901
  3. PREDNISONE TAB [Concomitant]
  4. PROZAC [Concomitant]

REACTIONS (4)
  - FRUSTRATION [None]
  - SUFFOCATION FEELING [None]
  - TONGUE DISORDER [None]
  - TREMOR [None]
